FAERS Safety Report 7392673-9 (Version None)
Quarter: 2011Q2

REPORT INFORMATION
  Report Type: 
  Country: None (occurrence: None)
  Receive Date: 20110404
  Receipt Date: 20110324
  Transmission Date: 20111010
  Serious: Yes (Hospitalization)
  Sender: FDA-Public Use
  Company Number: IT-GILEAD-2011-0037930

PATIENT
  Sex: Male

DRUGS (2)
  1. ATRIPLA [Suspect]
     Indication: HIV INFECTION
     Route: 048
  2. PENTACOL [Concomitant]

REACTIONS (2)
  - WHITE BLOOD CELL COUNT INCREASED [None]
  - NEUTROPENIA [None]
